FAERS Safety Report 16177903 (Version 1)
Quarter: 2019Q2

REPORT INFORMATION
  Report Type: Spontaneous
  Country: US (occurrence: US)
  Receive Date: 20190410
  Receipt Date: 20190410
  Transmission Date: 20190711
  Serious: No
  Sender: FDA-Public Use
  Company Number: US-ASTRAZENECA-2019SE41339

PATIENT
  Sex: Female
  Weight: 123.4 kg

DRUGS (1)
  1. PULMICORT FLEXHALER [Suspect]
     Active Substance: BUDESONIDE
     Indication: ASTHMA
     Route: 055
     Dates: start: 201810

REACTIONS (5)
  - Intentional product misuse [Unknown]
  - Wheezing [Unknown]
  - Device issue [Unknown]
  - Circumstance or information capable of leading to medication error [Unknown]
  - Dyspnoea [Unknown]
